FAERS Safety Report 8303670-0 (Version None)
Quarter: 2012Q2

REPORT INFORMATION
  Report Type: 
  Country: None (occurrence: None)
  Receive Date: 20120423
  Receipt Date: 20120417
  Transmission Date: 20120825
  Serious: Yes (Other)
  Sender: FDA-Public Use
  Company Number: US-PFIZER INC-2012077656

PATIENT
  Age: 46 Year
  Sex: Female
  Weight: 127 kg

DRUGS (7)
  1. CALCIUM [Concomitant]
     Dosage: UNK
     Route: 048
  2. GLUCOPHAGE [Concomitant]
     Indication: DIABETES MELLITUS
     Dosage: 500 MG, 2X/DAY
  3. ALDACTONE [Suspect]
     Indication: OEDEMA PERIPHERAL
  4. ALDACTONE [Suspect]
     Indication: HYPERTENSION
     Dosage: 25 MG, DAILY
  5. NORVASC [Suspect]
     Indication: HYPERTENSION
     Dosage: 10 MG, DAILY
     Dates: start: 20100101
  6. NORVASC [Suspect]
     Indication: OEDEMA PERIPHERAL
  7. NOVOLIN 70/30 [Concomitant]
     Indication: DIABETES MELLITUS
     Dosage: 65 IU, 2X/DAY

REACTIONS (1)
  - RENAL FAILURE [None]
